FAERS Safety Report 10585454 (Version 1)
Quarter: 2014Q4

REPORT INFORMATION
  Report Type: Spontaneous
  Country: US (occurrence: US)
  Receive Date: 20141114
  Receipt Date: 20141114
  Transmission Date: 20150529
  Serious: No
  Sender: FDA-Public Use
  Company Number: US-GLAXOSMITHKLINE-US2014GSK021280

PATIENT
  Sex: Male

DRUGS (5)
  1. STATIN (NOS) [Concomitant]
     Active Substance: UNSPECIFIED INGREDIENT
  2. ADVAIR DISKUS [Suspect]
     Active Substance: FLUTICASONE PROPIONATE\SALMETEROL XINAFOATE
     Indication: CHRONIC OBSTRUCTIVE PULMONARY DISEASE
  3. PREVACID [Concomitant]
     Active Substance: LANSOPRAZOLE
  4. STOOL SOFTENER [Concomitant]
     Active Substance: DOCUSATE CALCIUM
  5. ADVAIR DISKUS [Suspect]
     Active Substance: FLUTICASONE PROPIONATE\SALMETEROL XINAFOATE
     Indication: ASTHMA
     Dosage: 1 PUFF(S), BID
     Route: 055

REACTIONS (3)
  - Dyspnoea [Unknown]
  - Drug dose omission [Unknown]
  - Dysphonia [Unknown]
